FAERS Safety Report 24791922 (Version 2)
Quarter: 2025Q3

REPORT INFORMATION
  Report Type: Spontaneous
  Country: CA (occurrence: CA)
  Receive Date: 20241231
  Receipt Date: 20250703
  Transmission Date: 20251020
  Serious: Yes (Other)
  Sender: CELLTRION
  Company Number: CA-CELLTRION INC.-2024CA032720

PATIENT

DRUGS (2)
  1. YUFLYMA [Suspect]
     Active Substance: ADALIMUMAB-AATY
     Indication: Rheumatoid arthritis
     Dosage: 40MG Q2 WEKS/ 40 MILLIGRAM 1 EVERY 2 WEEKS
     Route: 058
     Dates: start: 20241125
  2. PLAQUENIL [Concomitant]
     Active Substance: HYDROXYCHLOROQUINE SULFATE
     Indication: Sjogren^s syndrome
     Route: 065

REACTIONS (3)
  - Surgery [Unknown]
  - Immunisation [Unknown]
  - Intentional dose omission [Unknown]
